FAERS Safety Report 16144346 (Version 1)
Quarter: 2019Q1

REPORT INFORMATION
  Report Type: Spontaneous
  Country: US (occurrence: US)
  Receive Date: 20190226
  Receipt Date: 20190226
  Transmission Date: 20190418
  Serious: Yes (Hospitalization)
  Sender: FDA-Public Use
  Company Number: None

PATIENT
  Age: 62 Year
  Sex: Female
  Weight: 60.6 kg

DRUGS (2)
  1. NIVOLUMAB [Suspect]
     Active Substance: NIVOLUMAB
     Indication: THYROID CANCER
     Route: 042
     Dates: start: 20180924
  2. IPILIMUMAB [Suspect]
     Active Substance: IPILIMUMAB
     Indication: THYROID CANCER
     Dosage: ?          OTHER FREQUENCY:Q6W;?
     Route: 042

REACTIONS (8)
  - Asthenia [None]
  - Adrenal insufficiency [None]
  - Fatigue [None]
  - Depression [None]
  - Autoimmune colitis [None]
  - Decreased appetite [None]
  - Hyponatraemia [None]
  - Failure to thrive [None]

NARRATIVE: CASE EVENT DATE: 20190222
